FAERS Safety Report 5507915-1 (Version None)
Quarter: 2007Q4

REPORT INFORMATION
  Report Type: 
  Country: None (occurrence: None)
  Receive Date: 20071106
  Receipt Date: 20071023
  Transmission Date: 20080405
  Serious: Yes (Other)
  Sender: FDA-Public Use
  Company Number: JP-ELI_LILLY_AND_COMPANY-JP200711000004

PATIENT
  Sex: Female
  Weight: 43.7 kg

DRUGS (8)
  1. RALOXIFENE HYDROCHLORIDE [Suspect]
     Indication: OSTEOPOROSIS POSTMENOPAUSAL
     Dosage: 60 MG, DAILY (1/D)
     Route: 048
     Dates: start: 20050517, end: 20070326
  2. GLAKAY [Concomitant]
     Indication: OSTEOPOROSIS POSTMENOPAUSAL
     Dosage: 30 MG, DAILY (1/D)
     Route: 048
     Dates: start: 20050517, end: 20070326
  3. OLMETEC [Concomitant]
     Indication: HYPERTENSION
     Dosage: 20 MG, DAILY (1/D)
     Route: 048
     Dates: start: 20050517, end: 20070326
  4. ETHYL ICOSAPENTATE [Concomitant]
     Indication: HYPERLIPIDAEMIA
     Dosage: 1200 MG, DAILY (1/D)
     Route: 048
     Dates: start: 20050517, end: 20070326
  5. URSO 250 [Concomitant]
     Indication: BILE DUCT STONE
     Dosage: 300 MG, DAILY (1/D)
     Route: 048
     Dates: start: 20060609, end: 20070326
  6. MAGNESIUM OXIDE [Concomitant]
     Indication: CONSTIPATION
     Dosage: 1.5 G, DAILY (1/D)
     Route: 048
     Dates: start: 20060609, end: 20070326
  7. CALBLOCK [Concomitant]
     Indication: HYPERTENSION
     Dosage: 16 MG, DAILY (1/D)
     Route: 048
     Dates: start: 20050517, end: 20070326
  8. GOSHAJINKIGAN [Concomitant]
     Indication: OSTEOPOROSIS POSTMENOPAUSAL
     Dosage: 5 G, DAILY (1/D)
     Route: 048
     Dates: start: 20050517, end: 20060609

REACTIONS (1)
  - GALLBLADDER CANCER [None]
